FAERS Safety Report 18120159 (Version 1)
Quarter: 2020Q3

REPORT INFORMATION
  Report Type: Spontaneous
  Country: US (occurrence: US)
  Receive Date: 20200806
  Receipt Date: 20200806
  Transmission Date: 20201103
  Serious: No
  Sender: FDA-Public Use
  Company Number: US-ABBVIE-20K-163-3460357-00

PATIENT
  Age: 56 Year
  Sex: Female

DRUGS (20)
  1. EMGALITY [Concomitant]
     Active Substance: GALCANEZUMAB-GNLM
     Indication: MIGRAINE
     Dates: end: 202004
  2. METFORMIN [Concomitant]
     Active Substance: METFORMIN HYDROCHLORIDE
     Indication: DIABETES MELLITUS
     Route: 048
  3. BOTOX [Suspect]
     Active Substance: ONABOTULINUMTOXINA
     Dosage: 4 CC OF SALINE INJECTED IN 30 PLACES AROUND HEAD AND NECK AND TOP OF SHOULDERS
     Route: 050
     Dates: start: 202003
  4. FLUTICASONE. [Concomitant]
     Active Substance: FLUTICASONE
     Indication: ASTHMA
     Route: 045
  5. ALBUTEROL. [Concomitant]
     Active Substance: ALBUTEROL
     Indication: ASTHMA
     Route: 055
  6. MEXILETINE [Concomitant]
     Active Substance: MEXILETINE
     Indication: FIBROMYALGIA
     Route: 048
  7. GABAPENTIN. [Concomitant]
     Active Substance: GABAPENTIN
     Indication: FIBROMYALGIA
     Route: 048
  8. GABAPENTIN. [Concomitant]
     Active Substance: GABAPENTIN
     Indication: NEUROPATHY PERIPHERAL
  9. BREO ELLIPTA [Concomitant]
     Active Substance: FLUTICASONE FUROATE\VILANTEROL TRIFENATATE
     Indication: ASTHMA
     Dosage: EVERY NIGHT
     Route: 055
  10. TOPIRAMATE. [Concomitant]
     Active Substance: TOPIRAMATE
     Indication: MIGRAINE
  11. ZONISAMIDE. [Concomitant]
     Active Substance: ZONISAMIDE
     Indication: MIGRAINE
     Route: 048
  12. ONDANSETRON [Concomitant]
     Active Substance: ONDANSETRON
     Indication: NAUSEA
     Dosage: 8 MG 0.5?1 TAB EVERY 8 HOURS AS NEEDED
     Route: 060
  13. VILANTEROL [Concomitant]
     Active Substance: VILANTEROL TRIFENATATE
     Indication: ASTHMA
     Route: 055
  14. OMEPRAZOLE. [Concomitant]
     Active Substance: OMEPRAZOLE
     Indication: GASTROOESOPHAGEAL REFLUX DISEASE
     Route: 048
  15. LOVASTATIN. [Concomitant]
     Active Substance: LOVASTATIN
     Indication: BLOOD CHOLESTEROL INCREASED
     Route: 048
  16. DIVALPROEX SODIUM ER [Suspect]
     Active Substance: DIVALPROEX SODIUM
     Indication: MIGRAINE
     Route: 048
  17. BOTOX [Suspect]
     Active Substance: ONABOTULINUMTOXINA
     Indication: MIGRAINE
     Dosage: 4 CC OF SALINE INJECTED IN 30 PLACES AROUND HEAD AND NECK AND TOP OF SHOULDERS
     Route: 050
     Dates: start: 201908, end: 201912
  18. DOMPERIDONE [Concomitant]
     Active Substance: DOMPERIDONE
     Indication: IMPAIRED GASTRIC EMPTYING
     Route: 048
  19. CYMBALTA [Concomitant]
     Active Substance: DULOXETINE HYDROCHLORIDE
     Indication: DEPRESSION
     Route: 048
  20. VITAMINS [Concomitant]
     Active Substance: VITAMINS
     Indication: VITAMIN SUPPLEMENTATION
     Route: 048

REACTIONS (2)
  - Oropharyngeal pain [Not Recovered/Not Resolved]
  - Migraine [Not Recovered/Not Resolved]

NARRATIVE: CASE EVENT DATE: 202002
